FAERS Safety Report 4332710-9 (Version None)
Quarter: 2004Q1

REPORT INFORMATION
  Report Type: 
  Country: None (occurrence: None)
  Receive Date: 20040330
  Receipt Date: 20040314
  Transmission Date: 20041129
  Serious: Yes (Disabling)
  Sender: FDA-Public Use
  Company Number: 2004SE01484

PATIENT
  Age: 50 Year
  Sex: Female

DRUGS (2)
  1. MARCAINE [Suspect]
     Indication: LOCAL ANAESTHESIA
     Dosage: 100 MG ONCE PNEU
  2. CATAPRES [Concomitant]

REACTIONS (6)
  - ANAESTHETIC COMPLICATION [None]
  - CARPAL TUNNEL SYNDROME [None]
  - CERVICAL ROOT PAIN [None]
  - IMPAIRED WORK ABILITY [None]
  - PAIN IN EXTREMITY [None]
  - POST-TRAUMATIC OSTEOPOROSIS [None]
